FAERS Safety Report 6595927-9 (Version None)
Quarter: 2010Q1

REPORT INFORMATION
  Report Type: 
  Country: None (occurrence: None)
  Receive Date: 20100219
  Receipt Date: 20100219
  Transmission Date: 20100710
  Serious: Yes (Hospitalization)
  Sender: FDA-Public Use
  Company Number: None

PATIENT
  Age: 44 Year
  Sex: Male
  Weight: 93.3 kg

DRUGS (1)
  1. DALTEPARIN SODIUM [Suspect]
     Indication: DEEP VEIN THROMBOSIS
     Dates: start: 20091024, end: 20091103

REACTIONS (3)
  - BONE MARROW TOXICITY [None]
  - HEPARIN-INDUCED THROMBOCYTOPENIA [None]
  - PANCYTOPENIA [None]
